FAERS Safety Report 12618157 (Version 1)
Quarter: 2016Q3

REPORT INFORMATION
  Report Type: Report from Study
  Country: US (occurrence: US)
  Receive Date: 20160803
  Receipt Date: 20160803
  Transmission Date: 20161109
  Serious: Yes (Other)
  Sender: FDA-Public Use
  Company Number: US-VIIV HEALTHCARE LIMITED-US2015GSK019282

PATIENT
  Age: 26 Year
  Sex: Female

DRUGS (3)
  1. MARAVIROC [Suspect]
     Active Substance: MARAVIROC
     Indication: ANTIVIRAL PROPHYLAXIS
     Dosage: TOTAL DAILY DOSE OF 300 MG
     Route: 048
     Dates: start: 20140211, end: 20140306
  2. TENOFOVIR DISOPROXIL FUMARATE. [Suspect]
     Active Substance: TENOFOVIR DISOPROXIL FUMARATE
     Indication: ANTIVIRAL PROPHYLAXIS
     Dosage: TOTAL DAILY DOSE OF 300 MG
     Route: 048
     Dates: start: 20140211, end: 20140306
  3. EMTRIVA [Suspect]
     Active Substance: EMTRICITABINE
     Indication: ANTIVIRAL PROPHYLAXIS
     Dosage: TOTAL DAILY DOSE OF 200 MG
     Route: 048
     Dates: start: 20140211, end: 20140306

REACTIONS (2)
  - Exposure during pregnancy [Recovered/Resolved]
  - Abortion spontaneous [Unknown]

NARRATIVE: CASE EVENT DATE: 20140211
